FAERS Safety Report 5597494-5 (Version None)
Quarter: 2008Q1

REPORT INFORMATION
  Report Type: 
  Country: None (occurrence: None)
  Receive Date: 20080121
  Receipt Date: 20080117
  Transmission Date: 20080703
  Serious: Yes (Other)
  Sender: FDA-Public Use
  Company Number: PHHO2007SG17299

PATIENT
  Age: 64 Year

DRUGS (7)
  1. TELBIVUDINE (LDT) [Suspect]
     Indication: HEPATITIS B
     Dosage: 600 MG,
     Route: 048
     Dates: start: 20060209, end: 20071018
  2. HYDROCHLOROTHIAZIDE [Concomitant]
     Indication: HYPERTENSION
  3. EVENING PRIMROSE OIL [Concomitant]
  4. ATENOLOL [Concomitant]
     Indication: HYPERTENSION
  5. ENALAPRIL MALEATE [Concomitant]
     Indication: HYPERTENSION
  6. LOSARTAN [Concomitant]
     Indication: HYPERTENSION
  7. NIFEDIPINE [Concomitant]
     Indication: HYPERTENSION

REACTIONS (7)
  - BLOOD CREATINE PHOSPHOKINASE DECREASED [None]
  - BLOOD CREATINE PHOSPHOKINASE INCREASED [None]
  - INTERVERTEBRAL DISC DISORDER [None]
  - MUSCULAR WEAKNESS [None]
  - MYOPATHY [None]
  - MYOSITIS [None]
  - NEUROPATHY PERIPHERAL [None]
